FAERS Safety Report 5438674-9 (Version None)
Quarter: 2007Q3

REPORT INFORMATION
  Report Type: 
  Country: None (occurrence: None)
  Receive Date: 20070831
  Receipt Date: 20070823
  Transmission Date: 20080115
  Serious: Yes (Hospitalization)
  Sender: FDA-Public Use
  Company Number: DK-JNJFOC-20070806143

PATIENT
  Sex: Male

DRUGS (8)
  1. PREZISTA [Suspect]
     Indication: HIV INFECTION
     Route: 048
  2. RITONAVIR [Suspect]
     Indication: HIV INFECTION
     Route: 048
  3. EFAVIRENZ [Concomitant]
     Indication: HIV INFECTION
     Route: 048
  4. EPZICOM [Concomitant]
     Indication: HIV INFECTION
     Route: 048
  5. MK0518/PLACEBO [Concomitant]
     Indication: HIV INFECTION
     Route: 048
  6. ALPROSTADIL [Concomitant]
     Route: 065
  7. IBUPROFEN [Concomitant]
     Route: 065
  8. ZOPICLONE [Concomitant]
     Route: 065

REACTIONS (1)
  - WRIST FRACTURE [None]
